FAERS Safety Report 9014050 (Version 1)
Quarter: 2013Q1

REPORT INFORMATION
  Report Type: Spontaneous
  Country: US (occurrence: US)
  Receive Date: 20130115
  Receipt Date: 20130115
  Transmission Date: 20140127
  Serious: Yes (Other)
  Sender: FDA-Public Use
  Company Number: US-009507513-1301USA002091

PATIENT
  Age: 7 Year
  Sex: Male

DRUGS (5)
  1. SINGULAIR [Suspect]
     Dosage: 5 MG, QD
     Route: 048
  2. MIRALAX [Concomitant]
     Indication: ASTHMA
  3. FLOVENT [Concomitant]
     Indication: GROWTH HORMONE DEFICIENCY
  4. ALBUTEROL [Concomitant]
  5. NUTROPIN (ATROPINE SULFATE) [Suspect]
     Dosage: 1 MG, 6/WEEK
     Route: 058

REACTIONS (4)
  - Sinusitis [Unknown]
  - Pain in extremity [Unknown]
  - Limb injury [Unknown]
  - Gait disturbance [Unknown]
